FAERS Safety Report 17036008 (Version 1)
Quarter: 2019Q4

REPORT INFORMATION
  Report Type: Spontaneous
  Country: US (occurrence: US)
  Receive Date: 20191114
  Receipt Date: 20191114
  Transmission Date: 20200122
  Serious: Yes (Hospitalization, Other)
  Sender: FDA-Public Use
  Company Number: None

PATIENT
  Age: 33 Year
  Sex: Female
  Weight: 54.9 kg

DRUGS (3)
  1. CLONAEPAM [Concomitant]
  2. LAMOTRIGINE 25 MG [Suspect]
     Active Substance: LAMOTRIGINE
     Indication: MIGRAINE
     Route: 048
     Dates: start: 20190719, end: 20190916
  3. FLUOXETINE [Concomitant]
     Active Substance: FLUOXETINE HYDROCHLORIDE

REACTIONS (10)
  - Withdrawal syndrome [None]
  - Dysarthria [None]
  - Visual field defect [None]
  - Nausea [None]
  - Paraesthesia [None]
  - Gait disturbance [None]
  - Amnesia [None]
  - Vertigo [None]
  - Weight decreased [None]
  - Visual impairment [None]

NARRATIVE: CASE EVENT DATE: 20190919
